FAERS Safety Report 7807299-X (Version None)
Quarter: 2011Q4

REPORT INFORMATION
  Report Type: 
  Country: None (occurrence: None)
  Receive Date: 20111011
  Receipt Date: 20111007
  Transmission Date: 20120403
  Serious: Yes (Hospitalization, Other)
  Sender: FDA-Public Use
  Company Number: BE-BRISTOL-MYERS SQUIBB COMPANY-15949753

PATIENT
  Age: 40 Year
  Sex: Female

DRUGS (15)
  1. CITALOPRAM HYDROBROMIDE [Concomitant]
  2. NEXIUM [Concomitant]
  3. ASAFLOW [Concomitant]
  4. GESTODENE [Concomitant]
  5. GLUCOPHAGE [Concomitant]
  6. TRAMADOL HCL [Concomitant]
  7. FUROSEMIDE [Concomitant]
  8. LOSFERRON [Concomitant]
  9. PIROXICAM [Concomitant]
  10. LEVOTHYROXINE SODIUM [Concomitant]
  11. ACETAMINOPHEN [Concomitant]
  12. D-CURE [Concomitant]
     Dosage: 1 DF= 1AMPOULE
  13. CALCIUM CARBONATE [Concomitant]
  14. ORENCIA [Suspect]
     Indication: RHEUMATOID ARTHRITIS
     Dosage: INTERRUPTED IN AUG10.REINTIATED:2FEB11,LAST PERFUSION:2MAR11.
     Route: 042
     Dates: start: 20100301
  15. PREDNISOLONE [Concomitant]

REACTIONS (3)
  - HYPERSENSITIVITY [None]
  - MYALGIA [None]
  - HYPERHIDROSIS [None]
